FAERS Safety Report 15653096 (Version 3)
Quarter: 2019Q1

REPORT INFORMATION
  Report Type: Report from Study
  Country: CA (occurrence: CA)
  Receive Date: 20181123
  Receipt Date: 20190131
  Transmission Date: 20190417
  Serious: Yes (Hospitalization)
  Sender: FDA-Public Use
  Company Number: CA-ACTELION-A-NJ2018-182096

PATIENT
  Age: 82 Year
  Sex: Male

DRUGS (12)
  1. XARELTO [Concomitant]
     Active Substance: RIVAROXABAN
  2. DUTASTERIDE. [Concomitant]
     Active Substance: DUTASTERIDE
  3. VITAMIN B12 [Concomitant]
     Active Substance: CYANOCOBALAMIN
  4. OPSUMIT [Suspect]
     Active Substance: MACITENTAN
     Indication: PULMONARY ARTERIAL HYPERTENSION
     Dosage: 10 MG, QD
     Route: 048
     Dates: start: 20180329
  5. HYDRAZINE [Concomitant]
     Active Substance: HYDRAZINE SULFATE
  6. IRON [Concomitant]
     Active Substance: IRON
  7. GABAPENTIN. [Concomitant]
     Active Substance: GABAPENTIN
  8. IRBESARTAN. [Concomitant]
     Active Substance: IRBESARTAN
  9. FUROSEMIDE. [Concomitant]
     Active Substance: FUROSEMIDE
  10. EMTEC [Concomitant]
  11. TERAZOSIN [Concomitant]
     Active Substance: TERAZOSIN\TERAZOSIN HYDROCHLORIDE
  12. RALIVIA [Concomitant]
     Active Substance: TRAMADOL HYDROCHLORIDE

REACTIONS (2)
  - Palliative care [Unknown]
  - Hospitalisation [Unknown]
